FAERS Safety Report 19211117 (Version 4)
Quarter: 2024Q2

REPORT INFORMATION
  Report Type: Spontaneous
  Country: US (occurrence: US)
  Receive Date: 20210504
  Receipt Date: 20240524
  Transmission Date: 20240716
  Serious: No
  Sender: FDA-Public Use
  Company Number: US-SANOFI-00578651

PATIENT
  Age: 60 Year
  Sex: Female

DRUGS (10)
  1. KEVZARA [Suspect]
     Active Substance: SARILUMAB
     Indication: Rheumatoid arthritis
     Dosage: 300 MG, QOW
     Route: 058
  2. KEVZARA [Suspect]
     Active Substance: SARILUMAB
     Dosage: 200 MG, QOW
     Route: 058
     Dates: start: 202302
  3. ATORVASTATIN [Concomitant]
     Active Substance: ATORVASTATIN
     Dosage: UNK
  4. VITAMIN K [Concomitant]
     Active Substance: PHYTONADIONE
     Dosage: UNK
  5. COLLAGEN [Concomitant]
     Active Substance: COLLAGEN
     Dosage: UNK
  6. THEANINE [Concomitant]
     Active Substance: THEANINE
     Dosage: UNK
  7. MAGNESIUM [Concomitant]
     Active Substance: MAGNESIUM
     Dosage: UNK
  8. VENLAFAXINE [Concomitant]
     Active Substance: VENLAFAXINE HYDROCHLORIDE
     Dosage: UNK
  9. VITAMIN D NOS [Concomitant]
     Active Substance: CHOLECALCIFEROL\ERGOCALCIFEROL
     Dosage: UNK, QD
  10. PREVAGEN [APOAEQUORIN] [Concomitant]
     Dosage: UNK

REACTIONS (5)
  - Injection site pain [Unknown]
  - Device issue [Unknown]
  - Pain [Not Recovered/Not Resolved]
  - Blood cholesterol increased [Recovered/Resolved]
  - Drug ineffective [Unknown]

NARRATIVE: CASE EVENT DATE: 20210426
